FAERS Safety Report 4699514-9 (Version None)
Quarter: 2005Q2

REPORT INFORMATION
  Report Type: 
  Country: None (occurrence: None)
  Receive Date: 20050622
  Receipt Date: 20050615
  Transmission Date: 20051028
  Serious: Yes (Hospitalization, Other)
  Sender: FDA-Public Use
  Company Number: DE-2005-000212

PATIENT
  Age: 50 Year
  Sex: Female

DRUGS (1)
  1. MIRENA [Suspect]
     Indication: MENORRHAGIA
     Dosage: 20 UG/DAY, CONT, INTRA-UTERINE
     Route: 015

REACTIONS (5)
  - AMENORRHOEA [None]
  - COLON CANCER [None]
  - ENDOMETRIAL CANCER METASTATIC [None]
  - GENITAL HAEMORRHAGE [None]
  - METASTASES TO ABDOMINAL CAVITY [None]
